FAERS Safety Report 4322383-3 (Version None)
Quarter: 2004Q1

REPORT INFORMATION
  Report Type: 
  Country: None (occurrence: None)
  Receive Date: 20040324
  Receipt Date: 20040317
  Transmission Date: 20041129
  Serious: Yes (Other)
  Sender: FDA-Public Use
  Company Number: US-BRISTOL-MYERS SQUIBB COMPANY-12535357

PATIENT
  Age: 2 Decade
  Sex: Male

DRUGS (2)
  1. TEQUIN [Suspect]
     Dosage: 4 POSSIBLY 5 TABLETS IN 24 HOURS
     Route: 048
     Dates: start: 20020101, end: 20020101
  2. AUGMENTIN [Concomitant]

REACTIONS (5)
  - ABDOMINAL DISCOMFORT [None]
  - ACCIDENTAL OVERDOSE [None]
  - INFERTILITY [None]
  - MEDICATION ERROR [None]
  - NEPHROLITHIASIS [None]
